FAERS Safety Report 8282042-1 (Version None)
Quarter: 2012Q2

REPORT INFORMATION
  Report Type: 
  Country: None (occurrence: None)
  Receive Date: 20120413
  Receipt Date: 20120404
  Transmission Date: 20120825
  Serious: Yes (Hospitalization)
  Sender: FDA-Public Use
  Company Number: US-ASTRAZENECA-2006UW21254

PATIENT
  Age: 50 Year
  Sex: Male

DRUGS (2)
  1. IPILIMUMAB [Suspect]
     Indication: MALIGNANT MELANOMA
     Route: 042
     Dates: start: 20060919, end: 20060919
  2. BUDESONIDE [Suspect]
     Indication: MALIGNANT MELANOMA
     Route: 048
     Dates: start: 20060919, end: 20060924

REACTIONS (2)
  - COLITIS [None]
  - RASH GENERALISED [None]
